FAERS Safety Report 5073358-0 (Version None)
Quarter: 2006Q3

REPORT INFORMATION
  Report Type: 
  Country: None (occurrence: None)
  Receive Date: 20060717
  Receipt Date: 20060214
  Transmission Date: 20061208
  Serious: No
  Sender: FDA-Public Use
  Company Number: 2006000407

PATIENT
  Age: 59 Year
  Sex: Female

DRUGS (7)
  1. TARCEVA [Suspect]
     Indication: NON-SMALL CELL LUNG CANCER
     Dosage: 150 MG (QD), ORAL
     Route: 048
     Dates: start: 20051220
  2. TYLENOL WITH CODEINE(PANADEINE CO) [Concomitant]
  3. LIPITOR [Concomitant]
  4. NASONEX [Concomitant]
  5. PREMPRO 14/14 [Concomitant]
  6. PREVACID [Concomitant]
  7. XANAX [Concomitant]

REACTIONS (1)
  - TONGUE BLACK HAIRY [None]
